FAERS Safety Report 25185667 (Version 2)
Quarter: 2025Q2

REPORT INFORMATION
  Report Type: Spontaneous
  Country: JP (occurrence: JP)
  Receive Date: 20250410
  Receipt Date: 20250417
  Transmission Date: 20250716
  Serious: Yes (Hospitalization, Other)
  Sender: MERCK SHARP AND DOHME
  Company Number: JP-MSD-M2025-01848

PATIENT
  Sex: Female
  Weight: 54.5 kg

DRUGS (2)
  1. KEYTRUDA [Suspect]
     Active Substance: PEMBROLIZUMAB
     Indication: Cervix carcinoma recurrent
     Dosage: DOSE DESCRIPTION : 200 MILLIGRAM, Q3W?DAILY DOSE : 9.4 MILLIGRAM?REGIMEN DOSE : 200  MILLIGRAM
     Route: 041
     Dates: start: 20231207, end: 20240723
  2. BEVACIZUMAB [Concomitant]
     Active Substance: BEVACIZUMAB
     Dates: end: 20240724

REACTIONS (3)
  - Immune-mediated enterocolitis [Recovered/Resolved]
  - Immune-mediated lung disease [Recovered/Resolved with Sequelae]
  - Immune-mediated enterocolitis [Unknown]

NARRATIVE: CASE EVENT DATE: 20240509
